FAERS Safety Report 10864953 (Version 2)
Quarter: 2015Q1

REPORT INFORMATION
  Report Type: Report from Study
  Country: CO (occurrence: CO)
  Receive Date: 20150224
  Receipt Date: 20150312
  Transmission Date: 20150721
  Serious: Yes (Other)
  Sender: FDA-Public Use
  Company Number: CO-ROCHE-1541775

PATIENT
  Age: 41 Year
  Sex: Female
  Weight: 53 kg

DRUGS (2)
  1. XOLAIR [Suspect]
     Active Substance: OMALIZUMAB
     Indication: OBSTRUCTIVE AIRWAYS DISORDER
     Dosage: LAST DOSE WAS ADMINISTERED ON 27/FEB/2015
     Route: 058
  2. XOLAIR [Suspect]
     Active Substance: OMALIZUMAB
     Indication: ASTHMA
     Route: 058

REACTIONS (7)
  - Dyspnoea [Unknown]
  - Laryngitis [Recovered/Resolved]
  - Chest discomfort [Unknown]
  - Asphyxia [Recovered/Resolved]
  - Influenza [Unknown]
  - Oropharyngeal pain [Unknown]
  - Neuralgia [Unknown]

NARRATIVE: CASE EVENT DATE: 20150213
